FAERS Safety Report 20894061 (Version 2)
Quarter: 2022Q3

REPORT INFORMATION
  Report Type: Spontaneous
  Country: US (occurrence: US)
  Receive Date: 20220531
  Receipt Date: 20220818
  Transmission Date: 20221026
  Serious: Yes (Other)
  Sender: FDA-Public Use
  Company Number: US-PFIZER INC-202200770671

PATIENT
  Age: 35 Year
  Sex: Male

DRUGS (1)
  1. XELJANZ XR [Suspect]
     Active Substance: TOFACITINIB CITRATE
     Indication: Rheumatoid arthritis
     Dosage: 11 MG, DAILY (ONCE DAILY)
     Route: 048
     Dates: start: 202205, end: 20220719

REACTIONS (5)
  - Thrombosis [Unknown]
  - Drug ineffective [Unknown]
  - Discouragement [Unknown]
  - Depressed mood [Unknown]
  - Memory impairment [Unknown]
